FAERS Safety Report 7523078-5 (Version None)
Quarter: 2011Q2

REPORT INFORMATION
  Report Type: 
  Country: None (occurrence: None)
  Receive Date: 20110525
  Receipt Date: 20110516
  Transmission Date: 20111010
  Serious: Yes (Hospitalization)
  Sender: FDA-Public Use
  Company Number: 2011SP022505

PATIENT
  Age: 9 Year
  Sex: Male
  Weight: 98.7481 kg

DRUGS (6)
  1. BOCEPREVIR [Suspect]
     Indication: HEPATITIS C
     Dates: start: 20081209, end: 20090714
  2. TERAZOSIN HCL [Concomitant]
  3. PEG-INTRON [Suspect]
     Indication: HEPATITIS C
     Dosage: 150 MCG;QW
     Dates: start: 20081209, end: 20090714
  4. RIBAVIRIN [Suspect]
     Indication: HEPATITIS C
     Dosage: 1200 MG
     Dates: start: 20081209, end: 20090714
  5. VICODIN [Concomitant]
  6. COLACE [Concomitant]

REACTIONS (2)
  - PULMONARY FIBROSIS [None]
  - URINARY HESITATION [None]
